FAERS Safety Report 5199737-9 (Version None)
Quarter: 2006Q4

REPORT INFORMATION
  Report Type: 
  Country: None (occurrence: None)
  Receive Date: 20061229
  Receipt Date: 20061225
  Transmission Date: 20070319
  Serious: Yes (Death)
  Sender: FDA-Public Use
  Company Number: 2006SP007533

PATIENT
  Age: 44 Year
  Sex: Female
  Weight: 68 kg

DRUGS (4)
  1. TEMODAL [Suspect]
     Indication: GLIOBLASTOMA MULTIFORME
     Dosage: 150 MG/M2; QD; PO
     Route: 048
     Dates: start: 20061028, end: 20061101
  2. INTERFERON BETA [Concomitant]
  3. NIMUSTINE HYDROCHLORIDE [Concomitant]
  4. ACETAMINOPHEN W/CAFF./PROMETHAZINE/SALICYLAM. [Concomitant]

REACTIONS (4)
  - CARDIAC FAILURE ACUTE [None]
  - NASOPHARYNGITIS [None]
  - NAUSEA [None]
  - VOMITING [None]
